FAERS Safety Report 23496168 (Version 1)
Quarter: 2024Q1

REPORT INFORMATION
  Report Type: Spontaneous
  Country: US (occurrence: None)
  Receive Date: 20240207
  Receipt Date: 20240207
  Transmission Date: 20240410
  Serious: No
  Sender: FDA-Public Use
  Company Number: US-ROCHE-3461897

PATIENT
  Age: 16 Year
  Sex: Male
  Weight: 59.928 kg

DRUGS (7)
  1. XOLAIR [Suspect]
     Active Substance: OMALIZUMAB
     Indication: Asthma
     Dosage: MOST RECENT DOSE DATE: 19/NOV/2023
     Route: 058
  2. XOLAIR [Suspect]
     Active Substance: OMALIZUMAB
  3. XOLAIR [Suspect]
     Active Substance: OMALIZUMAB
  4. XOLAIR [Suspect]
     Active Substance: OMALIZUMAB
     Indication: Urticaria
     Route: 058
     Dates: start: 20191011
  5. XOLAIR [Suspect]
     Active Substance: OMALIZUMAB
  6. XOLAIR [Suspect]
     Active Substance: OMALIZUMAB
  7. ALBUTEROL [Concomitant]
     Active Substance: ALBUTEROL
     Dosage: 2.5/3ML DOSE

REACTIONS (4)
  - Underdose [Unknown]
  - Needle issue [Unknown]
  - Syringe issue [Unknown]
  - No adverse event [Unknown]

NARRATIVE: CASE EVENT DATE: 20231119
